FAERS Safety Report 10072602 (Version 5)
Quarter: 2014Q2

REPORT INFORMATION
  Report Type: Spontaneous
  Country: US (occurrence: US)
  Receive Date: 20140411
  Receipt Date: 20140606
  Transmission Date: 20141212
  Serious: Yes (Disabling, Other)
  Sender: FDA-Public Use
  Company Number: US-009507513-1404USA006182

PATIENT
  Sex: Male
  Weight: 115.65 kg

DRUGS (5)
  1. PROSCAR [Suspect]
     Indication: PROSTATOMEGALY
     Dosage: 5 MG, UNK
     Dates: start: 200302, end: 200606
  2. FINASTERIDE [Suspect]
     Indication: PROSTATOMEGALY
     Dosage: 5 MG, UNK
     Dates: start: 200607, end: 201011
  3. AVODART [Concomitant]
     Indication: PROSTATOMEGALY
     Dosage: UNK
     Dates: start: 2003, end: 2010
  4. METOPROLOL [Concomitant]
     Indication: BLOOD PRESSURE
     Dosage: UNK
     Dates: start: 1970
  5. RAMIPRIL [Concomitant]
     Indication: BLOOD PRESSURE
     Dosage: UNK
     Dates: start: 1970

REACTIONS (34)
  - Prostate cancer metastatic [Unknown]
  - Metastases to bone [Recovering/Resolving]
  - Prostatic operation [Unknown]
  - Neoplasm malignant [Unknown]
  - Anxiety [Not Recovered/Not Resolved]
  - Emotional distress [Not Recovered/Not Resolved]
  - Depression [Not Recovered/Not Resolved]
  - Cystitis [Recovered/Resolved]
  - Arthralgia [Unknown]
  - Hypoaesthesia [Unknown]
  - Back pain [Unknown]
  - Constipation [Unknown]
  - Blood urine present [Unknown]
  - Dyspnoea exertional [Unknown]
  - Kidney small [Unknown]
  - Hyperplasia [Unknown]
  - Nephropathy [Unknown]
  - Oedema peripheral [Unknown]
  - Urinary tract infection [Unknown]
  - Hyperlipidaemia [Unknown]
  - Osteoarthritis [Unknown]
  - Osteoarthritis [Unknown]
  - Fatigue [Unknown]
  - Blood testosterone decreased [Unknown]
  - Erectile dysfunction [Unknown]
  - Libido decreased [Unknown]
  - Asthenia [Unknown]
  - Chest pain [Unknown]
  - Dysuria [Unknown]
  - Urine flow decreased [Unknown]
  - Micturition urgency [Unknown]
  - Pollakiuria [Unknown]
  - Nocturia [Unknown]
  - Metastatic neoplasm [Unknown]
